FAERS Safety Report 6915000-7 (Version None)
Quarter: 2010Q3

REPORT INFORMATION
  Report Type: 
  Country: None (occurrence: None)
  Receive Date: 20100809
  Receipt Date: 20100804
  Transmission Date: 20110219
  Serious: Yes (Life-Threatening, Hospitalization)
  Sender: FDA-Public Use
  Company Number: US-ASTRAZENECA-2010SE36432

PATIENT
  Age: 56 Year
  Sex: Female
  Weight: 79.4 kg

DRUGS (16)
  1. SEROQUEL [Suspect]
     Indication: INSOMNIA
     Route: 048
     Dates: start: 20050101
  2. FEXOFENADINE [Suspect]
     Indication: SINUS CONGESTION
     Route: 048
     Dates: start: 20100201
  3. SUDAFED 12 HOUR [Suspect]
     Indication: SINUS CONGESTION
     Route: 048
     Dates: start: 20100201
  4. RANITIDINE [Concomitant]
     Dates: start: 20050101
  5. METHYLIN [Concomitant]
     Dates: start: 20100101
  6. CYMBALTA [Concomitant]
     Dates: start: 20040101
  7. ZOLPIDEM [Concomitant]
     Dates: start: 20091001
  8. SENOKOT [Concomitant]
     Dates: start: 20091001
  9. MORPHINE SULFATE [Concomitant]
     Dates: start: 20091001
  10. ATENOLOL [Concomitant]
  11. FLONASE [Concomitant]
  12. OXYCONTIN [Concomitant]
  13. CLINDAMYCIN [Concomitant]
  14. CORTISONE [Concomitant]
  15. CARISOPRODOL [Concomitant]
  16. DIAZEPAM [Concomitant]

REACTIONS (2)
  - SYNCOPE [None]
  - TOXIC ENCEPHALOPATHY [None]
